FAERS Safety Report 13082294 (Version 1)
Quarter: 2017Q1

REPORT INFORMATION
  Report Type: Report from Study
  Country: JP (occurrence: JP)
  Receive Date: 20170103
  Receipt Date: 20170103
  Transmission Date: 20170428
  Serious: Yes (Death)
  Sender: FDA-Public Use
  Company Number: JP-PFIZER INC-2016605032

PATIENT

DRUGS (3)
  1. TS-1 [Suspect]
     Active Substance: GIMERACIL\OTERACIL\TEGAFUR
     Indication: METASTATIC GASTRIC CANCER
     Dosage: 40 MG/M2, CYCLIC (TWICE DAILY FROM DAYS 1 TO DAY 14 OF A 28-DAY CYCLE)
     Route: 048
  2. CISPLATIN. [Suspect]
     Active Substance: CISPLATIN
     Indication: METASTATIC GASTRIC CANCER
     Dosage: 70-60 MG/M2, CYCLIC (ON DAY 1 OF A 28-DAY CYCLE)
     Route: 042
  3. DOCETAXEL. [Suspect]
     Active Substance: DOCETAXEL
     Indication: METASTATIC GASTRIC CANCER
     Dosage: 40 MG/M2, CYCLIC (ON DAY 1 OF A 28-DAY CYCLE)
     Route: 042

REACTIONS (1)
  - Gastric perforation [Fatal]
